FAERS Safety Report 6934159-9 (Version None)
Quarter: 2010Q3

REPORT INFORMATION
  Report Type: 
  Country: None (occurrence: None)
  Receive Date: 20100820
  Receipt Date: 20100811
  Transmission Date: 20110219
  Serious: Yes (Life-Threatening, Hospitalization)
  Sender: FDA-Public Use
  Company Number: MX-WYE-H16842210

PATIENT
  Age: 48 Year
  Sex: Female

DRUGS (2)
  1. PRISTIQ [Suspect]
     Indication: MENOPAUSAL SYMPTOMS
     Route: 048
     Dates: start: 20100727, end: 20100803
  2. EUTIROX [Concomitant]
     Indication: HYPOTHYROIDISM
     Dosage: UNKNOWN

REACTIONS (4)
  - CEREBRAL INFARCTION [None]
  - MYDRIASIS [None]
  - PHOTOSENSITIVITY REACTION [None]
  - PNEUMONIA [None]
